FAERS Safety Report 7423385-0 (Version None)
Quarter: 2011Q2

REPORT INFORMATION
  Report Type: 
  Country: None (occurrence: None)
  Receive Date: 20110419
  Receipt Date: 20110414
  Transmission Date: 20111010
  Serious: No
  Sender: FDA-Public Use
  Company Number: SE-ROCHE-771078

PATIENT

DRUGS (3)
  1. ACCUTANE [Suspect]
     Route: 064
  2. ACCUTANE [Suspect]
     Indication: ACNE
     Route: 064
  3. ACCUTANE [Suspect]
     Route: 064

REACTIONS (2)
  - NORMAL NEWBORN [None]
  - NO ADVERSE EVENT [None]
